FAERS Safety Report 9672222 (Version 1)
Quarter: 2013Q4

REPORT INFORMATION
  Report Type: Spontaneous
  Country: US (occurrence: US)
  Receive Date: 20131106
  Receipt Date: 20131106
  Transmission Date: 20140711
  Serious: No
  Sender: FDA-Public Use
  Company Number: US-ENDO PHARMACEUTICALS INC.-HCDA20120005

PATIENT
  Sex: Female
  Weight: 64.47 kg

DRUGS (4)
  1. HYDROCODONE/ACETAMINOPHEN 10MG/325MG [Suspect]
     Indication: PAIN
     Route: 048
     Dates: start: 20120103
  2. CARISOPRODOL TABLETS 350MG [Suspect]
     Indication: MUSCLE SPASMS
     Route: 048
     Dates: start: 20120109
  3. PROMETHAZINE HYDROCHLORIDE TABLETS 25MG [Suspect]
     Indication: NAUSEA
     Route: 048
     Dates: start: 20111122
  4. OXYCODONE HCL 15MG [Suspect]
     Indication: PAIN
     Route: 065
     Dates: start: 20111026

REACTIONS (5)
  - Headache [Unknown]
  - Muscle spasms [Recovered/Resolved]
  - Drug ineffective [Unknown]
  - Nausea [Unknown]
  - Vomiting [Unknown]
